FAERS Safety Report 15158449 (Version 1)
Quarter: 2018Q3

REPORT INFORMATION
  Report Type: Spontaneous
  Country: US (occurrence: US)
  Receive Date: 20180718
  Receipt Date: 20180718
  Transmission Date: 20181010
  Serious: No
  Sender: FDA-Public Use
  Company Number: PHHY2018US049756

PATIENT
  Sex: Female

DRUGS (4)
  1. SYSTANE BALANCE [Suspect]
     Active Substance: PROPYLENE GLYCOL
     Indication: POSTOPERATIVE CARE
  2. SYSTANE GELDROPS [Suspect]
     Active Substance: POLYETHYLENE GLYCOL 400\PROPYLENE GLYCOL
     Indication: POSTOPERATIVE CARE
  3. SYSTANE BALANCE [Suspect]
     Active Substance: PROPYLENE GLYCOL
     Indication: DRY EYE
     Route: 047
  4. SYSTANE GELDROPS [Suspect]
     Active Substance: POLYETHYLENE GLYCOL 400\PROPYLENE GLYCOL
     Indication: DRY EYE
     Route: 047

REACTIONS (2)
  - Ocular discomfort [Recovered/Resolved]
  - Eye irritation [Recovered/Resolved]
